FAERS Safety Report 7993384-9 (Version None)
Quarter: 2011Q4

REPORT INFORMATION
  Report Type: 
  Country: None (occurrence: None)
  Receive Date: 20111219
  Receipt Date: 20111010
  Transmission Date: 20120403
  Serious: No
  Sender: FDA-Public Use
  Company Number: US-ASTRAZENECA-2010SE04720

PATIENT
  Age: 83 Year
  Sex: Female
  Weight: 85.3 kg

DRUGS (6)
  1. BYSTOLIC [Concomitant]
  2. DIOVAN [Concomitant]
  3. CRESTOR [Suspect]
     Indication: HYPERCHOLESTEROLAEMIA
     Route: 048
     Dates: start: 20091228, end: 20100118
  4. COUMADIN [Concomitant]
  5. AMIODARONE HCL [Concomitant]
  6. CRESTOR [Suspect]
     Route: 048

REACTIONS (5)
  - FEELING ABNORMAL [None]
  - ABDOMINAL PAIN [None]
  - DIARRHOEA [None]
  - HEADACHE [None]
  - PAIN IN EXTREMITY [None]
